FAERS Safety Report 25856575 (Version 8)
Quarter: 2025Q4

REPORT INFORMATION
  Report Type: Spontaneous
  Country: JP (occurrence: JP)
  Receive Date: 20250929
  Receipt Date: 20251226
  Transmission Date: 20260117
  Serious: Yes (Hospitalization, Other)
  Sender: BRISTOL-MYERS SQUIBB COMPANY
  Company Number: JP-BRISTOL-MYERS SQUIBB COMPANY-2025-130754

PATIENT
  Age: 49 Year
  Sex: Male

DRUGS (4)
  1. YERVOY [Suspect]
     Active Substance: IPILIMUMAB
     Indication: Hepatocellular carcinoma
     Route: 041
  2. YERVOY [Suspect]
     Active Substance: IPILIMUMAB
     Route: 041
  3. OPDIVO [Suspect]
     Active Substance: NIVOLUMAB
     Indication: Hepatocellular carcinoma
  4. OPDIVO [Suspect]
     Active Substance: NIVOLUMAB

REACTIONS (7)
  - Immune-mediated hepatic disorder [Recovering/Resolving]
  - Interleukin level increased [Unknown]
  - Pyrexia [Recovered/Resolved]
  - Malaise [Unknown]
  - Decreased appetite [Unknown]
  - Hepatocellular carcinoma [Unknown]
  - Cytokine release syndrome [Unknown]

NARRATIVE: CASE EVENT DATE: 20250816
